FAERS Safety Report 12181251 (Version 2)
Quarter: 2016Q2

REPORT INFORMATION
  Report Type: Spontaneous
  Country: FR (occurrence: FR)
  Receive Date: 20160315
  Receipt Date: 20160415
  Transmission Date: 20160815
  Serious: Yes (Death)
  Sender: FDA-Public Use
  Company Number: FR-009507513-1603FRA005920

PATIENT
  Sex: Male

DRUGS (5)
  1. IFOSFAMIDE. [Suspect]
     Active Substance: IFOSFAMIDE
     Indication: SPINDLE CELL SARCOMA
     Dosage: 8 G, CYCLICAL (DURATION: 4 HOURS)
     Route: 042
     Dates: start: 20160112, end: 20160112
  2. ADRIAMYCIN [Suspect]
     Active Substance: DOXORUBICIN HYDROCHLORIDE
     Indication: SPINDLE CELL SARCOMA
     Dosage: 100 MG, CYCLICAL
     Route: 042
     Dates: start: 20160112, end: 20160112
  3. ZOPHREN (ONDANSETRON HYDROCHLORIDE) [Concomitant]
     Active Substance: ONDANSETRON HYDROCHLORIDE
     Dosage: 8 MG, QD (STRENGTH: 8MG/4ML)
     Route: 042
     Dates: start: 20160112, end: 20160112
  4. EMEND [Suspect]
     Active Substance: APREPITANT
     Indication: PROPHYLAXIS OF NAUSEA AND VOMITING
     Dosage: UNK
     Route: 048
     Dates: start: 20160112, end: 20160114
  5. UROMITEXAN [Concomitant]
     Active Substance: MESNA
     Dosage: UNK
     Route: 042
     Dates: start: 20160112, end: 20160112

REACTIONS (1)
  - Encephalopathy [Fatal]
